FAERS Safety Report 8159971-2 (Version None)
Quarter: 2012Q1

REPORT INFORMATION
  Report Type: 
  Country: None (occurrence: None)
  Receive Date: 20120223
  Receipt Date: 20120216
  Transmission Date: 20120608
  Serious: Yes (Hospitalization)
  Sender: FDA-Public Use
  Company Number: US-GLAXOSMITHKLINE-A0886374A

PATIENT
  Age: 67 Year
  Sex: Female

DRUGS (5)
  1. GLYBURIDE [Concomitant]
  2. CLONAZEPAM [Concomitant]
  3. AVANDIA [Suspect]
     Indication: DIABETES MELLITUS
     Dosage: 4MG PER DAY
     Route: 048
     Dates: start: 20000101, end: 20070101
  4. DILTIAZEM HCL [Concomitant]
  5. LIPITOR [Concomitant]

REACTIONS (5)
  - MYOCARDIAL INFARCTION [None]
  - CORONARY ARTERY DISEASE [None]
  - TRANSIENT ISCHAEMIC ATTACK [None]
  - PALPITATIONS [None]
  - ACUTE CORONARY SYNDROME [None]
